FAERS Safety Report 4629713-3 (Version None)
Quarter: 2005Q2

REPORT INFORMATION
  Report Type: 
  Country: None (occurrence: None)
  Receive Date: 20050407
  Receipt Date: 20050317
  Transmission Date: 20051028
  Serious: Yes (Death, Hospitalization)
  Sender: FDA-Public Use
  Company Number: DE_050315507

PATIENT
  Age: 76 Year
  Sex: Female

DRUGS (2)
  1. FORTEO [Suspect]
     Indication: OSTEOPOROSIS
     Dosage: 20 UG DAY
     Dates: start: 20040916, end: 20041001
  2. FORTEO [Suspect]
     Indication: SPINAL FRACTURE
     Dosage: 20 UG DAY
     Dates: start: 20040916, end: 20041001

REACTIONS (4)
  - CARDIAC FAILURE [None]
  - CONDITION AGGRAVATED [None]
  - GENERAL PHYSICAL HEALTH DETERIORATION [None]
  - RENAL IMPAIRMENT [None]
